FAERS Safety Report 4758575-9 (Version None)
Quarter: 2005Q3

REPORT INFORMATION
  Report Type: 
  Country: None (occurrence: None)
  Receive Date: 20050826
  Receipt Date: 20050811
  Transmission Date: 20060218
  Serious: Yes (Death, Hospitalization)
  Sender: FDA-Public Use
  Company Number: 107317ISR

PATIENT
  Age: 45 Year
  Sex: Male

DRUGS (3)
  1. CISPLATIN [Suspect]
     Dosage: 60 MG/M2 INTRAVENOUS (NOS)
     Route: 042
     Dates: start: 20030321, end: 20030321
  2. EPIRUBICIN [Suspect]
     Dosage: 50 MG/M2 INTRAVENOUS (NOS)
     Route: 042
     Dates: start: 20030321, end: 20030321
  3. XELODA [Suspect]
     Dosage: ORAL
     Route: 048
     Dates: start: 20030321

REACTIONS (9)
  - ASTHENIA [None]
  - BEDRIDDEN [None]
  - GASTROINTESTINAL NECROSIS [None]
  - GENERAL PHYSICAL HEALTH DETERIORATION [None]
  - INTESTINAL HAEMORRHAGE [None]
  - KARNOFSKY SCALE WORSENED [None]
  - MUCOSAL INFLAMMATION [None]
  - ORAL INTAKE REDUCED [None]
  - PAIN [None]
